FAERS Safety Report 11814041 (Version 1)
Quarter: 2015Q4

REPORT INFORMATION
  Report Type: Spontaneous
  Country: HU (occurrence: HU)
  Receive Date: 20151209
  Receipt Date: 20151209
  Transmission Date: 20160305
  Serious: Yes (Hospitalization, Other)
  Sender: FDA-Public Use
  Company Number: HU-PFIZER INC-2015340545

PATIENT
  Age: 71 Year
  Sex: Female

DRUGS (2)
  1. XETER [Concomitant]
     Indication: HYPERTENSION
     Dosage: UNK
  2. SUTENT [Suspect]
     Active Substance: SUNITINIB MALATE
     Indication: CLEAR CELL RENAL CELL CARCINOMA
     Dosage: 50 MG, DAILY ACCORDING TO 4/2 SCHEMA
     Route: 048
     Dates: start: 20150916

REACTIONS (8)
  - Dehydration [Unknown]
  - Renal impairment [Not Recovered/Not Resolved]
  - Blood pressure increased [Unknown]
  - Stomatitis [Unknown]
  - Vomiting [Unknown]
  - Dyspepsia [Unknown]
  - Nausea [Unknown]
  - Feeding disorder [Unknown]
